FAERS Safety Report 9012188 (Version 2)
Quarter: 2013Q3

REPORT INFORMATION
  Report Type: Report from Study
  Country: JP (occurrence: JP)
  Receive Date: 20130114
  Receipt Date: 20130722
  Transmission Date: 20140515
  Serious: Yes (Disabling, Other)
  Sender: FDA-Public Use
  Company Number: JP-MERCK-1208JPN007060

PATIENT
  Age: 67 Year
  Sex: Male

DRUGS (6)
  1. ISENTRESS TABLETS 400MG [Suspect]
     Indication: HIV INFECTION
     Dosage: 800 MG, QD
     Route: 048
     Dates: start: 20110419
  2. EPIVIR [Suspect]
     Indication: HIV INFECTION
     Dosage: 150 MG, BID
     Route: 048
     Dates: start: 20060607, end: 20060620
  3. EPIVIR [Suspect]
     Dosage: 150 MG, QD
     Route: 048
     Dates: start: 20060905
  4. ZIAGEN [Suspect]
     Indication: HIV INFECTION
     Dosage: 300 MG, BID
     Route: 048
     Dates: start: 20110419
  5. ADALAT [Concomitant]
     Indication: CEREBRAL INFARCTION
     Dosage: 20 MG, QD
     Route: 048
  6. PERSANTIN [Concomitant]
     Indication: CEREBRAL INFARCTION
     Dosage: 150 MG, BID
     Route: 048

REACTIONS (1)
  - Renal impairment [Not Recovered/Not Resolved]
